FAERS Safety Report 24751424 (Version 1)
Quarter: 2024Q4

REPORT INFORMATION
  Report Type: Report from Study
  Country: MX (occurrence: MX)
  Receive Date: 20241219
  Receipt Date: 20241219
  Transmission Date: 20250115
  Serious: Yes (Hospitalization)
  Sender: BIOVITRUM
  Company Number: MX-AstraZeneca-CH-00767234A

PATIENT
  Age: 3 Month
  Sex: Female
  Weight: 2.695 kg

DRUGS (4)
  1. PALIVIZUMAB [Suspect]
     Active Substance: PALIVIZUMAB
     Indication: Antiviral prophylaxis
     Dosage: 1 MILLILITER, Q MONTH
     Route: 030
     Dates: start: 20241112
  2. PALIVIZUMAB [Suspect]
     Active Substance: PALIVIZUMAB
     Dosage: 50 MG/0.5 ML PRESENTATION WAS USED TO APPLY A DOSE OF 0.4 ML MONTHLY
     Route: 030
     Dates: start: 20241210, end: 20241210
  3. VITAMINS [Concomitant]
     Active Substance: VITAMINS
     Indication: Product used for unknown indication
     Dosage: 2 GTT DROPS, QD
     Dates: start: 202411
  4. IRON [Concomitant]
     Active Substance: IRON
     Indication: Product used for unknown indication
     Dosage: UNK
     Dates: start: 202411

REACTIONS (3)
  - Pain [Recovered/Resolved]
  - Restlessness [Recovered/Resolved]
  - Crying [Recovered/Resolved]

NARRATIVE: CASE EVENT DATE: 20241210
